FAERS Safety Report 12637405 (Version 1)
Quarter: 2016Q3

REPORT INFORMATION
  Report Type: Spontaneous
  Country: US (occurrence: US)
  Receive Date: 20160809
  Receipt Date: 20160809
  Transmission Date: 20161109
  Serious: No
  Sender: FDA-Public Use
  Company Number: US-BEH-2016060950

PATIENT
  Sex: Male
  Weight: 90 kg

DRUGS (28)
  1. PRIVIGEN [Suspect]
     Active Substance: HUMAN IMMUNOGLOBULIN G
     Route: 042
  2. PRIVIGEN [Suspect]
     Active Substance: HUMAN IMMUNOGLOBULIN G
     Route: 042
  3. HEPARIN [Concomitant]
     Active Substance: HEPARIN SODIUM
  4. LIDOCAINE. [Concomitant]
     Active Substance: LIDOCAINE
  5. XALATAN [Concomitant]
     Active Substance: LATANOPROST
  6. SYNTHROID [Concomitant]
     Active Substance: LEVOTHYROXINE SODIUM
  7. DILTIAZEM. [Concomitant]
     Active Substance: DILTIAZEM
  8. DIPHENHYDRAMINE. [Concomitant]
     Active Substance: DIPHENHYDRAMINE
  9. EPIPEN [Concomitant]
     Active Substance: EPINEPHRINE
  10. ASPIRIN. [Concomitant]
     Active Substance: ASPIRIN
  11. HCTZ [Concomitant]
     Active Substance: HYDROCHLOROTHIAZIDE
  12. VENTOLIN [Concomitant]
     Active Substance: ALBUTEROL SULFATE
  13. CLONAZEPAM. [Concomitant]
     Active Substance: CLONAZEPAM
  14. NORMAL SALINE [Concomitant]
     Active Substance: SODIUM CHLORIDE
  15. VITAMIN D [Concomitant]
     Active Substance: CHOLECALCIFEROL
  16. SODIUM CHLORIDE. [Concomitant]
     Active Substance: SODIUM CHLORIDE
  17. SINGULAIR [Concomitant]
     Active Substance: MONTELUKAST SODIUM
  18. PREVACID [Concomitant]
     Active Substance: LANSOPRAZOLE
  19. IBUPROFEN. [Concomitant]
     Active Substance: IBUPROFEN
  20. AXIRON [Concomitant]
     Active Substance: TESTOSTERONE
  21. DETROL [Concomitant]
     Active Substance: TOLTERODINE TARTRATE
  22. PULMICORT TURBUHALER [Concomitant]
     Active Substance: BUDESONIDE
  23. PRIVIGEN [Suspect]
     Active Substance: HUMAN IMMUNOGLOBULIN G
     Route: 042
  24. PRIVIGEN [Suspect]
     Active Substance: HUMAN IMMUNOGLOBULIN G
     Indication: POLYNEUROPATHY IN MALIGNANT DISEASE
     Route: 042
  25. ACETAMINOPHEN. [Concomitant]
     Active Substance: ACETAMINOPHEN
  26. ALPHAGAN P [Concomitant]
     Active Substance: BRIMONIDINE TARTRATE
  27. CELEBREX [Concomitant]
     Active Substance: CELECOXIB
  28. FLOMAX [Concomitant]
     Active Substance: TAMSULOSIN HYDROCHLORIDE

REACTIONS (1)
  - Sinusitis [Unknown]
